FAERS Safety Report 14498165 (Version 1)
Quarter: 2018Q1

REPORT INFORMATION
  Report Type: Spontaneous
  Country: US (occurrence: US)
  Receive Date: 20180207
  Receipt Date: 20180207
  Transmission Date: 20180509
  Serious: Yes (Hospitalization, Disabling)
  Sender: FDA-Public Use
  Company Number: US-JNJFOC-20180205850

PATIENT
  Age: 55 Year
  Sex: Male
  Weight: 96.16 kg

DRUGS (2)
  1. INVOKANA [Suspect]
     Active Substance: CANAGLIFLOZIN
     Indication: PRODUCT USED FOR UNKNOWN INDICATION
     Route: 048
  2. INVOKANA [Suspect]
     Active Substance: CANAGLIFLOZIN
     Indication: PRODUCT USED FOR UNKNOWN INDICATION
     Route: 048
     Dates: start: 20150326, end: 2017

REACTIONS (8)
  - Cellulitis [Unknown]
  - Gangrene [Unknown]
  - Foot amputation [Unknown]
  - Osteomyelitis [Unknown]
  - Leg amputation [Unknown]
  - Diabetic foot [Unknown]
  - Wound dehiscence [Unknown]
  - Postoperative wound infection [Unknown]

NARRATIVE: CASE EVENT DATE: 20150930
